FAERS Safety Report 9356279 (Version 3)
Quarter: 2013Q3

REPORT INFORMATION
  Report Type: Report from Study
  Country: DE (occurrence: DE)
  Receive Date: 20130619
  Receipt Date: 20130711
  Transmission Date: 20140515
  Serious: Yes (Hospitalization)
  Sender: FDA-Public Use
  Company Number: DE-BRISTOL-MYERS SQUIBB COMPANY-19022441

PATIENT
  Age: 57 Year
  Sex: Male

DRUGS (3)
  1. CETUXIMAB [Suspect]
     Indication: LARYNGEAL CANCER
     Dosage: 400MG/M2 ALSO TKN
     Route: 042
     Dates: start: 20090910, end: 20090910
  2. CISPLATIN [Suspect]
     Indication: LARYNGEAL CANCER
     Dosage: RCNT INF 16NV09
     Route: 042
     Dates: start: 20090910, end: 20091116
  3. DOCETAXEL [Suspect]
     Indication: LARYNGEAL CANCER
     Dosage: RCNT INF 16NV09
     Route: 042
     Dates: start: 20090910, end: 20091116

REACTIONS (3)
  - Mucosal inflammation [Recovered/Resolved]
  - Dysphagia [Recovered/Resolved]
  - Pain [Recovered/Resolved]
